FAERS Safety Report 8029903-6 (Version None)
Quarter: 2012Q1

REPORT INFORMATION
  Report Type: 
  Country: None (occurrence: None)
  Receive Date: 20120109
  Receipt Date: 20120104
  Transmission Date: 20120608
  Serious: Yes (Other)
  Sender: FDA-Public Use
  Company Number: US-BAYER-2011-111276

PATIENT
  Age: 62 Year
  Sex: Male

DRUGS (3)
  1. SORAFENIB (RAF KINASE INHIBITOR) [Suspect]
     Indication: HEPATIC NEOPLASM MALIGNANT
     Dosage: 400 MG, BID
     Route: 048
     Dates: start: 20111108, end: 20111130
  2. BLOOD PRESSURE MEDICATION (NOS) [Concomitant]
  3. SORAFENIB (RAF KINASE INHIBITOR) [Suspect]
     Dosage: 200 MG, BID
     Route: 048
     Dates: start: 20111201

REACTIONS (11)
  - PRURITUS [None]
  - COORDINATION ABNORMAL [None]
  - LETHARGY [None]
  - BLOOD GLUCOSE INCREASED [None]
  - FATIGUE [None]
  - BLOOD PRESSURE INCREASED [None]
  - NEUROLOGICAL SYMPTOM [None]
  - DISORIENTATION [None]
  - GAIT DISTURBANCE [None]
  - MOTOR DYSFUNCTION [None]
  - SOMNOLENCE [None]
